FAERS Safety Report 7320822-7 (Version None)
Quarter: 2011Q1

REPORT INFORMATION
  Report Type: 
  Country: None (occurrence: None)
  Receive Date: 20110228
  Receipt Date: 20110218
  Transmission Date: 20110831
  Serious: Yes (Other)
  Sender: FDA-Public Use
  Company Number: US-TEVA-267981USA

PATIENT
  Sex: Female

DRUGS (4)
  1. CLONAZEPAM [Suspect]
     Dates: start: 20110216
  2. FURUSET [Concomitant]
  3. DIAZEPAM [Concomitant]
  4. PRIMIDONE [Concomitant]

REACTIONS (1)
  - LOSS OF CONSCIOUSNESS [None]
